FAERS Safety Report 24282827 (Version 1)
Quarter: 2024Q3

REPORT INFORMATION
  Report Type: Spontaneous
  Country: US (occurrence: None)
  Receive Date: 20240904
  Receipt Date: 20240904
  Transmission Date: 20241017
  Serious: Yes (Life-Threatening, Hospitalization)
  Sender: Public
  Company Number: None

PATIENT
  Age: 22 Year
  Sex: Female
  Weight: 94.05 kg

DRUGS (3)
  1. REMICADE [Suspect]
     Active Substance: INFLIXIMAB
     Indication: Hidradenitis
     Dosage: 900 MG EVERY9 WEEKS INTRAVENOUS
     Route: 042
     Dates: start: 20220819
  2. DIPHENHYDRAMINE [Concomitant]
     Active Substance: DIPHENHYDRAMINE
  3. Acetaminophen 650mg by mouth [Concomitant]

REACTIONS (4)
  - Infusion related reaction [None]
  - Chest discomfort [None]
  - Cough [None]
  - Refusal of treatment by patient [None]

NARRATIVE: CASE EVENT DATE: 20240824
